FAERS Safety Report 13648680 (Version 1)
Quarter: 2017Q2

REPORT INFORMATION
  Report Type: Spontaneous
  Country: RU (occurrence: RU)
  Receive Date: 20170613
  Receipt Date: 20170613
  Transmission Date: 20170830
  Serious: Yes (Other)
  Sender: FDA-Public Use
  Company Number: RU-B. BRAUN MEDICAL INC.-2021929

PATIENT
  Age: 28 Year
  Sex: Female

DRUGS (1)
  1. RINGER [Suspect]
     Active Substance: RINGER^S SOLUTION
     Route: 042

REACTIONS (3)
  - Tetany [Recovering/Resolving]
  - Hypoaesthesia [Recovering/Resolving]
  - Chills [Recovering/Resolving]

NARRATIVE: CASE EVENT DATE: 20160926
